FAERS Safety Report 6610326-9 (Version None)
Quarter: 2010Q1

REPORT INFORMATION
  Report Type: 
  Country: None (occurrence: None)
  Receive Date: 20100302
  Receipt Date: 20100222
  Transmission Date: 20100710
  Serious: Yes (Hospitalization)
  Sender: FDA-Public Use
  Company Number: PHHY2010BR10948

PATIENT
  Sex: Female
  Weight: 50 kg

DRUGS (8)
  1. EXELON [Suspect]
     Indication: DEMENTIA ALZHEIMER'S TYPE
     Dosage: 1.5 MG, BID
     Route: 048
  2. EXELON [Suspect]
     Dosage: 3 MG, BID
     Dates: start: 20071101
  3. EXELON [Suspect]
     Dosage: 1.5 MG
  4. PROLOPA [Concomitant]
     Indication: PARKINSON'S DISEASE
     Dosage: 0.25 DF, TID
     Route: 048
     Dates: start: 20061101
  5. HUMULIN 70/30 [Concomitant]
     Indication: DIABETES MELLITUS
     Dosage: 16U
     Route: 058
  6. GLIFAGE XR [Concomitant]
     Indication: DIABETES MELLITUS
     Dosage: 500 MG, QD, ONE TABLET AT NIGHT
     Route: 048
  7. RIVOTRIL [Concomitant]
     Indication: SLEEP DISORDER
     Dosage: 1 MG, QD, ONE TABLET AT NIGHT
     Route: 048
  8. CAPTOPRIL [Concomitant]
     Indication: HYPERTENSION
     Dosage: 12.5 MG, BID
     Route: 048

REACTIONS (9)
  - ABDOMINAL PAIN UPPER [None]
  - CONSTIPATION [None]
  - DECREASED APPETITE [None]
  - DIZZINESS [None]
  - FAECALOMA [None]
  - HYPOPHAGIA [None]
  - NAUSEA [None]
  - PNEUMONIA [None]
  - VOMITING [None]
